FAERS Safety Report 19445115 (Version 1)
Quarter: 2021Q2

REPORT INFORMATION
  Report Type: Spontaneous
  Country: US (occurrence: US)
  Receive Date: 20210621
  Receipt Date: 20210621
  Transmission Date: 20210717
  Serious: No
  Sender: FDA-Public Use
  Company Number: NVSC2021US132510

PATIENT
  Sex: Female

DRUGS (2)
  1. XIIDRA [Suspect]
     Active Substance: LIFITEGRAST
     Indication: PRODUCT USED FOR UNKNOWN INDICATION
     Dosage: 2.2 MG, BID
     Route: 065
     Dates: start: 20210610
  2. VITA (ASCORBIC ACID\COLECALCIFEROL\RETINOL) [Interacting]
     Active Substance: VITAMINS
     Indication: PRODUCT USED FOR UNKNOWN INDICATION
     Route: 065

REACTIONS (4)
  - Taste disorder [Unknown]
  - Upper-airway cough syndrome [Unknown]
  - Vision blurred [Unknown]
  - Anxiety [Unknown]
